FAERS Safety Report 9739928 (Version 2)
Quarter: 2014Q2

REPORT INFORMATION
  Report Type: Spontaneous
  Country: US (occurrence: US)
  Receive Date: 20131209
  Receipt Date: 20140407
  Transmission Date: 20141212
  Serious: Yes (Death)
  Sender: FDA-Public Use
  Company Number: US-ASTELLAS-2013US012170

PATIENT
  Sex: Male

DRUGS (1)
  1. XTANDI [Suspect]
     Indication: PROSTATE CANCER
     Dosage: 160 MG, UID/QD
     Route: 048
     Dates: start: 20131011

REACTIONS (7)
  - Death [Fatal]
  - Joint swelling [Unknown]
  - Cyst [Unknown]
  - Back pain [Unknown]
  - Insomnia [Recovering/Resolving]
  - Arthralgia [Unknown]
  - Pruritus [Recovering/Resolving]
